FAERS Safety Report 8370161-0 (Version None)
Quarter: 2012Q2

REPORT INFORMATION
  Report Type: 
  Country: None (occurrence: None)
  Receive Date: 20120518
  Receipt Date: 20120511
  Transmission Date: 20120825
  Serious: Yes (Hospitalization)
  Sender: FDA-Public Use
  Company Number: US-BAYER-201022272NA

PATIENT
  Age: 40 Year
  Sex: Female
  Weight: 107.3 kg

DRUGS (25)
  1. YASMIN [Suspect]
     Indication: CONTRACEPTION
     Dosage: UNK
     Route: 048
     Dates: start: 20060301, end: 20090901
  2. KINERET [Concomitant]
     Dosage: UNK
     Dates: start: 20071205, end: 20080418
  3. CEFUROXIME [Concomitant]
     Dosage: 250 MG, UNK
     Dates: start: 20090612, end: 20090817
  4. MINOCYCLINE HCL [Concomitant]
     Dosage: UNK
     Dates: start: 20071205, end: 20080418
  5. NITROFURANTOIN [Concomitant]
     Dosage: 100 MG, UNK
     Dates: start: 20090722
  6. AVELOX [Concomitant]
     Dosage: 400 MG, QD
     Route: 048
     Dates: start: 20090811, end: 20090824
  7. LOTREL [Concomitant]
     Indication: BLOOD PRESSURE ABNORMAL
     Dosage: UNK
     Route: 048
     Dates: start: 20071205, end: 20080418
  8. SELECTIVE IMMUNOSUPPRESSIVE AGENTS [Concomitant]
  9. XODOL [Concomitant]
     Dosage: UNK
     Dates: start: 20090612
  10. OXYCODONE HCL AND ACETAMINOPHEN [Concomitant]
     Dosage: UNK
     Route: 048
     Dates: start: 20090811, end: 20090911
  11. POLY-CITRA CRYSTALS [Concomitant]
     Dosage: UNK
     Dates: start: 20071205
  12. CELEBREX [Concomitant]
     Indication: RHEUMATOID ARTHRITIS
     Dosage: 400 MG, QD
     Route: 048
     Dates: start: 20071205, end: 20080418
  13. CELEBREX [Concomitant]
     Dosage: UNK
     Dates: start: 20010101
  14. PERCOCET [Concomitant]
  15. TUSSIONEX [Concomitant]
     Dosage: UNK
     Dates: start: 20090612
  16. DROSPIRENONE AND ETHINYL ESTRADIOL [Suspect]
     Dosage: UNK
     Dates: start: 20060301, end: 20090901
  17. LUNESTA [Concomitant]
     Dosage: UNK
     Dates: start: 20071205
  18. LOTREL [Concomitant]
     Dosage: UNK
     Dates: start: 20050101
  19. ALLOPURINOL [Concomitant]
     Dosage: 100 MG, QD
     Route: 048
     Dates: start: 20071205, end: 20080418
  20. ZYRTEC [Concomitant]
     Dosage: UNK
     Dates: start: 20071205
  21. PREDNISONE [Concomitant]
     Dosage: UNK
     Dates: start: 20071205, end: 20080418
  22. TUSSIONEX [Concomitant]
     Dosage: UNK
     Dates: start: 20090804
  23. SINGULAIR [Concomitant]
     Dosage: 10 MG, UNK
     Route: 048
     Dates: start: 20090612, end: 20090817
  24. AMOXICILLIN AND CLAVULANATE POTASSIUM [Concomitant]
     Dosage: 875 MG, UNK
     Dates: start: 20090804, end: 20090824
  25. PRILOSEC [Concomitant]
     Dosage: UNK
     Dates: start: 20071205, end: 20080418

REACTIONS (3)
  - THROMBOSIS [None]
  - PAIN [None]
  - DEEP VEIN THROMBOSIS [None]
